FAERS Safety Report 20688684 (Version 1)
Quarter: 2022Q2

REPORT INFORMATION
  Report Type: Report from Study
  Country: US (occurrence: US)
  Receive Date: 20220408
  Receipt Date: 20220408
  Transmission Date: 20220721
  Serious: Yes (Hospitalization)
  Sender: FDA-Public Use
  Company Number: US-BIOGEN-2022BI01110873

PATIENT
  Age: 12 Year
  Sex: Male

DRUGS (1)
  1. SPINRAZA [Suspect]
     Active Substance: NUSINERSEN
     Indication: Spinal muscular atrophy
     Dosage: 6 MAINTENANCE DOSES BEYOND THE INITIAL 4 LOADING DOSES
     Route: 037

REACTIONS (4)
  - Influenza like illness [Unknown]
  - Procedural complication [Unknown]
  - Drug ineffective [Unknown]
  - Drug intolerance [Unknown]
